FAERS Safety Report 10057919 (Version 1)
Quarter: 2014Q2

REPORT INFORMATION
  Report Type: Spontaneous
  Country: US (occurrence: None)
  Receive Date: 20140403
  Receipt Date: 20140403
  Transmission Date: 20141212
  Serious: Yes (Disabling)
  Sender: FDA-Public Use
  Company Number: None

PATIENT
  Age: 54 Year
  Sex: Female
  Weight: 54.43 kg

DRUGS (1)
  1. ALENDRONATE [Suspect]
     Indication: OSTEOPOROSIS
     Dosage: BY MOUTH
     Route: 048

REACTIONS (5)
  - Bone pain [None]
  - Abasia [None]
  - Myalgia [None]
  - Tooth disorder [None]
  - Pain in jaw [None]
